FAERS Safety Report 7325600-0 (Version None)
Quarter: 2011Q1

REPORT INFORMATION
  Report Type: 
  Country: None (occurrence: None)
  Receive Date: 20110302
  Receipt Date: 20110223
  Transmission Date: 20110831
  Serious: Yes (Hospitalization)
  Sender: FDA-Public Use
  Company Number: US-ELI_LILLY_AND_COMPANY-US201102007091

PATIENT
  Age: 65 Year
  Sex: Female

DRUGS (2)
  1. HUMULIN N [Suspect]
     Indication: DIABETES MELLITUS
     Dosage: 50 U, 2/D
     Dates: start: 20101201
  2. HUMULIN R [Suspect]
     Indication: DIABETES MELLITUS
     Dates: start: 20101201

REACTIONS (8)
  - BLOOD GLUCOSE INCREASED [None]
  - INFLUENZA [None]
  - FEELING ABNORMAL [None]
  - INCORRECT STORAGE OF DRUG [None]
  - CHEST DISCOMFORT [None]
  - CHEST PAIN [None]
  - ERUCTATION [None]
  - CARDIAC DISORDER [None]
